FAERS Safety Report 24575387 (Version 6)
Quarter: 2025Q1

REPORT INFORMATION
  Report Type: Report from Study
  Country: KR (occurrence: KR)
  Receive Date: 20241104
  Receipt Date: 20250306
  Transmission Date: 20250409
  Serious: Yes (Hospitalization, Other)
  Sender: ASTELLAS
  Company Number: KR-ASTELLAS-2024-AER-014253

PATIENT
  Age: 78 Year
  Sex: Male
  Weight: 50 kg

DRUGS (71)
  1. ENFORTUMAB VEDOTIN-EJFV [Suspect]
     Active Substance: ENFORTUMAB VEDOTIN-EJFV
     Indication: Transitional cell carcinoma
     Dosage: 1.25(MG/KG), 60(MG) /QD /INTRAVENOUS INFUSION
     Route: 042
     Dates: start: 20240605
  2. ENFORTUMAB VEDOTIN-EJFV [Suspect]
     Active Substance: ENFORTUMAB VEDOTIN-EJFV
     Dosage: 1.25(MG/KG), 60(MG) /QD /INTRAVENOUS INFUSION
     Route: 042
     Dates: start: 20240612
  3. ENFORTUMAB VEDOTIN-EJFV [Suspect]
     Active Substance: ENFORTUMAB VEDOTIN-EJFV
     Dosage: 1.25(MG/KG), 60(MG) /QD /INTRAVENOUS INFUSION
     Route: 042
     Dates: start: 20240619
  4. ENFORTUMAB VEDOTIN-EJFV [Suspect]
     Active Substance: ENFORTUMAB VEDOTIN-EJFV
     Dosage: 1.25(MG/KG), 60(MG) /QD /INTRAVENOUS INFUSION
     Route: 042
     Dates: start: 20240703
  5. ENFORTUMAB VEDOTIN-EJFV [Suspect]
     Active Substance: ENFORTUMAB VEDOTIN-EJFV
     Dosage: 1.25(MG/KG), 60(MG) /QD /INTRAVENOUS INFUSION
     Route: 042
     Dates: start: 20240710
  6. ENFORTUMAB VEDOTIN-EJFV [Suspect]
     Active Substance: ENFORTUMAB VEDOTIN-EJFV
     Dosage: 1.25(MG/KG), 60(MG) /QD /INTRAVENOUS INFUSION
     Route: 042
     Dates: start: 20240717
  7. ENFORTUMAB VEDOTIN-EJFV [Suspect]
     Active Substance: ENFORTUMAB VEDOTIN-EJFV
     Dosage: 1.25(MG/KG), 60(MG) /QD /INTRAVENOUS INFUSION
     Route: 042
     Dates: start: 20240731
  8. ENFORTUMAB VEDOTIN-EJFV [Suspect]
     Active Substance: ENFORTUMAB VEDOTIN-EJFV
     Dosage: 1.25(MG/KG), 60(MG) /QD /INTRAVENOUS INFUSION
     Route: 042
     Dates: start: 20240807
  9. ENFORTUMAB VEDOTIN-EJFV [Suspect]
     Active Substance: ENFORTUMAB VEDOTIN-EJFV
     Dosage: 1.25(MG/KG), 60(MG) /QD /INTRAVENOUS INFUSION
     Route: 042
     Dates: start: 20240814
  10. ENFORTUMAB VEDOTIN-EJFV [Suspect]
     Active Substance: ENFORTUMAB VEDOTIN-EJFV
     Dosage: 1.25(MG/KG), 60(MG) /QD /INTRAVENOUS INFUSION
     Route: 042
     Dates: start: 20240828
  11. ENFORTUMAB VEDOTIN-EJFV [Suspect]
     Active Substance: ENFORTUMAB VEDOTIN-EJFV
     Dosage: 1.25(MG/KG), 60(MG) /QD /INTRAVENOUS INFUSION
     Route: 042
     Dates: start: 20240903
  12. ENFORTUMAB VEDOTIN-EJFV [Suspect]
     Active Substance: ENFORTUMAB VEDOTIN-EJFV
     Dosage: 1.25(MG/KG), 60(MG) /QD /INTRAVENOUS INFUSION
     Route: 042
     Dates: start: 20240910
  13. ENFORTUMAB VEDOTIN-EJFV [Suspect]
     Active Substance: ENFORTUMAB VEDOTIN-EJFV
     Dosage: 1.0(MG/KG), 49.5(MG) /QD /INTRAVENOUS INFUSION
     Route: 042
     Dates: start: 20240924
  14. ENFORTUMAB VEDOTIN-EJFV [Suspect]
     Active Substance: ENFORTUMAB VEDOTIN-EJFV
     Dosage: 1.0(MG/KG), 49.5(MG) /QD /INTRAVENOUS INFUSION
     Route: 042
     Dates: start: 20240930
  15. ENFORTUMAB VEDOTIN-EJFV [Suspect]
     Active Substance: ENFORTUMAB VEDOTIN-EJFV
     Dosage: 1.0(MG/KG), 49.5(MG) /QD /INTRAVENOUS INFUSION
     Route: 042
     Dates: start: 20241007
  16. ENFORTUMAB VEDOTIN-EJFV [Suspect]
     Active Substance: ENFORTUMAB VEDOTIN-EJFV
     Route: 042
     Dates: start: 20241022
  17. NESBELL [Concomitant]
     Indication: Anaemia
     Route: 058
     Dates: start: 20240612, end: 20240612
  18. NESBELL [Concomitant]
     Route: 058
     Dates: start: 20240619, end: 20240619
  19. NESBELL [Concomitant]
     Route: 058
     Dates: start: 20240703, end: 20240703
  20. NESBELL [Concomitant]
     Route: 058
     Dates: start: 20240930, end: 20240930
  21. NESBELL [Concomitant]
     Route: 058
     Dates: start: 20241007, end: 20241007
  22. NESBELL [Concomitant]
     Route: 058
     Dates: start: 20240605, end: 20240605
  23. FERRITOP [Concomitant]
     Indication: Anaemia
     Route: 048
     Dates: start: 20220907, end: 20240619
  24. Tridol RETARD [Concomitant]
     Indication: Product used for unknown indication
     Route: 048
     Dates: start: 20220411, end: 20240612
  25. ENTELON [Concomitant]
     Indication: Venous hypertension
     Route: 048
     Dates: start: 20240403, end: 20240612
  26. PHENIL [Concomitant]
     Indication: Premedication
     Route: 042
     Dates: start: 20240612, end: 20240612
  27. PHENIL [Concomitant]
     Route: 042
     Dates: start: 20240619, end: 20240619
  28. PHENIL [Concomitant]
     Route: 042
     Dates: start: 20240703, end: 20240703
  29. PHENIL [Concomitant]
     Route: 042
     Dates: start: 20240710, end: 20240710
  30. PHENIL [Concomitant]
     Route: 042
     Dates: start: 20240717, end: 20240717
  31. PHENIL [Concomitant]
     Route: 042
     Dates: start: 20240731, end: 20240731
  32. PHENIL [Concomitant]
     Route: 042
     Dates: start: 20240807, end: 20240807
  33. PHENIL [Concomitant]
     Route: 042
     Dates: start: 20240814, end: 20240814
  34. PHENIL [Concomitant]
     Route: 042
     Dates: start: 20240903, end: 20240903
  35. PHENIL [Concomitant]
     Route: 042
     Dates: start: 20240910, end: 20240910
  36. PHENIL [Concomitant]
     Route: 042
     Dates: start: 20240924, end: 20240924
  37. PHENIL [Concomitant]
     Route: 042
     Dates: start: 20240930, end: 20240930
  38. PHENIL [Concomitant]
     Route: 042
     Dates: start: 20241007, end: 20241007
  39. PHENIL [Concomitant]
     Route: 042
     Dates: start: 20240605, end: 20240605
  40. MECKOOL [Concomitant]
     Indication: Premedication
     Route: 042
     Dates: start: 20240612, end: 20240612
  41. MECKOOL [Concomitant]
     Route: 042
     Dates: start: 20240619, end: 20240619
  42. MECKOOL [Concomitant]
     Route: 042
     Dates: start: 20240703, end: 20240703
  43. MECKOOL [Concomitant]
     Route: 042
     Dates: start: 20240710, end: 20240710
  44. MECKOOL [Concomitant]
     Route: 042
     Dates: start: 20240717, end: 20240717
  45. MECKOOL [Concomitant]
     Route: 042
     Dates: start: 20240731, end: 20240731
  46. MECKOOL [Concomitant]
     Route: 042
     Dates: start: 20240807, end: 20240807
  47. MECKOOL [Concomitant]
     Route: 042
     Dates: start: 20240814, end: 20240814
  48. MECKOOL [Concomitant]
     Route: 042
     Dates: start: 20240827, end: 20240827
  49. MECKOOL [Concomitant]
     Route: 042
     Dates: start: 20240903, end: 20240903
  50. MECKOOL [Concomitant]
     Route: 042
     Dates: start: 20240910, end: 20240910
  51. MECKOOL [Concomitant]
     Route: 042
     Dates: start: 20240924, end: 20240924
  52. MECKOOL [Concomitant]
     Route: 042
     Dates: start: 20240930, end: 20240930
  53. MECKOOL [Concomitant]
     Route: 042
     Dates: start: 20241007, end: 20241007
  54. MECKOOL [Concomitant]
     Route: 042
     Dates: start: 20240605, end: 20240605
  55. SUSPEN 8 HOURS ER [Concomitant]
     Indication: Premedication
     Route: 048
     Dates: start: 20240605, end: 20240605
  56. SUSPEN 8 HOURS ER [Concomitant]
     Route: 048
     Dates: start: 20240612, end: 20240612
  57. SUSPEN 8 HOURS ER [Concomitant]
     Route: 048
     Dates: start: 20240619, end: 20240619
  58. SUSPEN 8 HOURS ER [Concomitant]
     Route: 048
     Dates: start: 20240703, end: 20240703
  59. SUSPEN 8 HOURS ER [Concomitant]
     Route: 048
     Dates: start: 20240710, end: 20240710
  60. SUSPEN 8 HOURS ER [Concomitant]
     Route: 048
     Dates: start: 20240717, end: 20240717
  61. SUSPEN 8 HOURS ER [Concomitant]
     Route: 048
     Dates: start: 20240731, end: 20240731
  62. SUSPEN 8 HOURS ER [Concomitant]
     Route: 048
     Dates: start: 20240807, end: 20240807
  63. SUSPEN 8 HOURS ER [Concomitant]
     Route: 048
     Dates: start: 20240814, end: 20240814
  64. SUSPEN 8 HOURS ER [Concomitant]
     Route: 048
     Dates: start: 20240903, end: 20240903
  65. SUSPEN 8 HOURS ER [Concomitant]
     Route: 048
     Dates: start: 20240910, end: 20240910
  66. SUSPEN 8 HOURS ER [Concomitant]
     Route: 048
     Dates: start: 20240924, end: 20240924
  67. SUSPEN 8 HOURS ER [Concomitant]
     Route: 048
     Dates: start: 20240930, end: 20240930
  68. SUSPEN 8 HOURS ER [Concomitant]
     Route: 048
     Dates: start: 20241007, end: 20241007
  69. GENUONE OLMESARTAN [Concomitant]
     Indication: Hypertension
     Route: 048
     Dates: start: 202201, end: 20241030
  70. SUSPEN 8 HOURS ER [Concomitant]
     Indication: Premedication
     Dosage: MODIFICATION OF THE CORRESPONDING DRUG
     Route: 042
     Dates: start: 20240827, end: 20240827
  71. PHENIL [Concomitant]
     Indication: Premedication
     Route: 048
     Dates: start: 20240827, end: 20240828

REACTIONS (20)
  - Haematochezia [Recovered/Resolved]
  - Acute kidney injury [Recovered/Resolved]
  - Anaemia [Recovered/Resolved]
  - Colitis [Recovered/Resolved]
  - Hypokalaemia [Recovered/Resolved]
  - Hydronephrosis [Recovered/Resolved]
  - Urinary bladder haematoma [Recovered/Resolved]
  - Haematuria [Recovered/Resolved]
  - Dysuria [Not Recovered/Not Resolved]
  - Micturition disorder [Recovered/Resolved]
  - Pruritus [Not Recovered/Not Resolved]
  - Rash [Not Recovered/Not Resolved]
  - Decubitus ulcer [Not Recovered/Not Resolved]
  - Pyrexia [Recovered/Resolved]
  - Hypomagnesaemia [Recovered/Resolved]
  - Hypocalcaemia [Not Recovered/Not Resolved]
  - Anaemia [Not Recovered/Not Resolved]
  - Haematuria [Not Recovered/Not Resolved]
  - Aspartate aminotransferase increased [Not Recovered/Not Resolved]
  - Alanine aminotransferase increased [Not Recovered/Not Resolved]

NARRATIVE: CASE EVENT DATE: 20240608
